FAERS Safety Report 26067814 (Version 1)
Quarter: 2025Q4

REPORT INFORMATION
  Report Type: Spontaneous
  Country: US (occurrence: US)
  Receive Date: 20251120
  Receipt Date: 20251120
  Transmission Date: 20260118
  Serious: Yes (Other)
  Sender: Kenvue
  Company Number: US-KENVUE-20251104288

PATIENT
  Age: 83 Year
  Sex: Male

DRUGS (1)
  1. TYLENOL EXTRA STRENGTH [Suspect]
     Active Substance: ACETAMINOPHEN
     Indication: Pyrexia
     Dosage: 1 DOSAGE FORM, ONCE A DAY (ONE TABLET EACH DAY TWICE (2 DAYS ONLY)
     Dates: start: 20251027, end: 20251028

REACTIONS (4)
  - Foreign body in throat [Recovering/Resolving]
  - Incorrect dose administered [Unknown]
  - Product coating issue [Unknown]
  - Choking sensation [Recovering/Resolving]

NARRATIVE: CASE EVENT DATE: 20251027
